FAERS Safety Report 7817113-4 (Version None)
Quarter: 2011Q4

REPORT INFORMATION
  Report Type: 
  Country: None (occurrence: None)
  Receive Date: 20111013
  Receipt Date: 20110927
  Transmission Date: 20120403
  Serious: Yes (Other)
  Sender: FDA-Public Use
  Company Number: 2011MA014512

PATIENT
  Age: 68 Year
  Sex: Female

DRUGS (4)
  1. EPINEPHRINE [Suspect]
     Indication: BLEPHAROPLASTY
     Dosage: 1X;ICAV
  2. SODIUM BICARBONATE [Suspect]
     Indication: BLEPHAROPLASTY
     Dosage: 1X;ICAV
  3. BUPIVACAINE HCL [Suspect]
     Indication: BLEPHAROPLASTY
     Dosage: 1X;ICAV
  4. LIDOCAINE HCL [Suspect]
     Indication: BLEPHAROPLASTY
     Dosage: 1X;ICAV

REACTIONS (10)
  - TOXICITY TO VARIOUS AGENTS [None]
  - ANGLE CLOSURE GLAUCOMA [None]
  - VISUAL ACUITY REDUCED [None]
  - CORNEAL PERFORATION [None]
  - PUPILLARY REFLEX IMPAIRED [None]
  - ANAESTHETIC COMPLICATION [None]
  - PAIN [None]
  - CORNEAL OEDEMA [None]
  - KERATITIS [None]
  - MYDRIASIS [None]
